FAERS Safety Report 10753051 (Version 1)
Quarter: 2015Q1

REPORT INFORMATION
  Report Type: Spontaneous
  Country: US (occurrence: US)
  Receive Date: 20150130
  Receipt Date: 20150130
  Transmission Date: 20150721
  Serious: Yes (Hospitalization, Other)
  Sender: FDA-Public Use
  Company Number: US-BAYER-2015-009642

PATIENT
  Age: 17 Year
  Sex: Male

DRUGS (9)
  1. ROBITUSSIN (GUAIFENESIN) [Suspect]
     Active Substance: GUAIFENESIN
  2. HYDROCODONE [Suspect]
     Active Substance: HYDROCODONE
  3. DIPHENHYDRAMINE HYDROCHLORIDE. [Suspect]
     Active Substance: DIPHENHYDRAMINE HYDROCHLORIDE
     Dosage: DAILY DOSE 450 MG
     Route: 048
  4. FLUOXETINE [Concomitant]
     Active Substance: FLUOXETINE\FLUOXETINE HYDROCHLORIDE
     Dosage: DAILY DOSE 40 MG
  5. RISPERIDONE. [Concomitant]
     Active Substance: RISPERIDONE
     Dosage: DAILY DOSE 1.5 MG
  6. METHYLENEDIOXYMETHAMPHETAMINE [Suspect]
     Active Substance: METHYLENEDIOXYMETHAMPHETAMINE
  7. RISPERIDONE. [Concomitant]
     Active Substance: RISPERIDONE
     Dosage: 1 MG, HS
  8. DIPHENHYDRAMINE HYDROCHLORIDE. [Suspect]
     Active Substance: DIPHENHYDRAMINE HYDROCHLORIDE
     Dosage: 24 DF, ONCE
     Route: 048
  9. CANNABIS [Suspect]
     Active Substance: CANNABIS SATIVA SUBSP. INDICA TOP

REACTIONS (11)
  - Substance abuse [None]
  - Depression [None]
  - Substance-induced psychotic disorder [None]
  - Dysuria [None]
  - Agitation [None]
  - Abnormal behaviour [None]
  - Toxicity to various agents [None]
  - Hallucination [None]
  - Intentional overdose [None]
  - Tremor [None]
  - Polysubstance dependence [None]
